FAERS Safety Report 26045196 (Version 2)
Quarter: 2025Q4

REPORT INFORMATION
  Report Type: Spontaneous
  Country: EU (occurrence: EU)
  Receive Date: 20251114
  Receipt Date: 20251129
  Transmission Date: 20260118
  Serious: Yes (Life-Threatening, Hospitalization)
  Sender: ACCORD
  Company Number: EU-Accord-512647

PATIENT
  Age: 64 Year
  Sex: Female

DRUGS (13)
  1. OSELTAMIVIR [Interacting]
     Active Substance: OSELTAMIVIR
     Indication: Influenza
     Dates: start: 202412
  2. WARFARIN [Interacting]
     Active Substance: WARFARIN
     Indication: Atrial fibrillation
     Dates: start: 202412
  3. BISOPROLOL [Concomitant]
     Active Substance: BISOPROLOL
     Indication: Cardiac valve disease
  4. DAPAGLIFLOZIN [Concomitant]
     Active Substance: DAPAGLIFLOZIN
     Indication: Cardiac valve disease
  5. FLUTICASONE [Concomitant]
     Active Substance: FLUTICASONE
     Indication: Chronic respiratory failure
  6. FUROSEMIDE [Concomitant]
     Active Substance: FUROSEMIDE
     Indication: Cardiac valve disease
  7. LEVOTHYROXINE [Concomitant]
     Active Substance: LEVOTHYROXINE
     Indication: Hypothyroidism
  8. OXYGEN [Concomitant]
     Active Substance: OXYGEN
     Dosage: 2L
  9. SALMETEROL [Concomitant]
     Active Substance: SALMETEROL
     Indication: Chronic respiratory failure
  10. SPIRONOLACTONE [Concomitant]
     Active Substance: SPIRONOLACTONE
     Indication: Cardiac valve disease
  11. TERBUTALINE [Concomitant]
     Active Substance: TERBUTALINE
     Indication: Chronic respiratory failure
  12. WARFARIN [Interacting]
     Active Substance: WARFARIN
     Indication: Atrial fibrillation
     Dates: start: 202412, end: 202412
  13. WARFARIN [Interacting]
     Active Substance: WARFARIN
     Indication: Atrial fibrillation
     Dates: start: 202412, end: 202412

REACTIONS (4)
  - Overdose [Unknown]
  - Gastrointestinal haemorrhage [Recovering/Resolving]
  - Anaemia [Recovering/Resolving]
  - Drug interaction [Unknown]

NARRATIVE: CASE EVENT DATE: 20241201
